FAERS Safety Report 21812703 (Version 1)
Quarter: 2022Q4

REPORT INFORMATION
  Report Type: Spontaneous
  Country: US (occurrence: None)
  Receive Date: 20221231
  Receipt Date: 20221231
  Transmission Date: 20230112
  Serious: Yes (Other)
  Sender: FDA-Public Use
  Company Number: None

PATIENT
  Age: 91 Year
  Sex: Male

DRUGS (14)
  1. METRONIDAZOLE [Suspect]
     Active Substance: METRONIDAZOLE
     Indication: Small intestinal obstruction
     Dosage: FREQUENCY : TWICE A DAY;?
     Route: 048
     Dates: start: 20221227, end: 20221227
  2. DILTIAZEM [Concomitant]
     Active Substance: DILTIAZEM
  3. Metoprol tar [Concomitant]
  4. ATORVASTATIN [Concomitant]
     Active Substance: ATORVASTATIN
  5. TAMSULOSIN [Concomitant]
     Active Substance: TAMSULOSIN
  6. FINASTERIDE [Concomitant]
     Active Substance: FINASTERIDE
  7. VITAMIN B12 [Concomitant]
     Active Substance: CYANOCOBALAMIN
  8. Preser vision Areds 2 [Concomitant]
  9. CALCIUM [Concomitant]
     Active Substance: CALCIUM
  10. C [Concomitant]
  11. ASPIRIN [Concomitant]
     Active Substance: ASPIRIN
  12. ABC complete [Concomitant]
  13. BIOTIN [Concomitant]
     Active Substance: BIOTIN
  14. GINKGO [Concomitant]
     Active Substance: GINKGO

REACTIONS (4)
  - Visual field defect [None]
  - Hallucination [None]
  - Therapy cessation [None]
  - Nervous system disorder [None]

NARRATIVE: CASE EVENT DATE: 20221227
